FAERS Safety Report 4976102-8 (Version None)
Quarter: 2006Q2

REPORT INFORMATION
  Report Type: 
  Country: None (occurrence: None)
  Receive Date: 20060411
  Receipt Date: 20060328
  Transmission Date: 20061013
  Serious: No
  Sender: FDA-Public Use
  Company Number: US200602003814

PATIENT
  Age: 40 Year
  Sex: Female
  Weight: 56.2 kg

DRUGS (3)
  1. CYMBALTA [Suspect]
     Indication: NERVE INJURY
     Dosage: 60 MG, DAILY (1D)
     Dates: start: 20051001
  2. ADVAIR DISKUS 100/50 [Concomitant]
  3. AZMACORT [Concomitant]

REACTIONS (20)
  - ANAEMIA [None]
  - BALANCE DISORDER [None]
  - BLOOD GLUCOSE INCREASED [None]
  - BLOOD PRESSURE INCREASED [None]
  - CHEST PAIN [None]
  - DECREASED APPETITE [None]
  - DIZZINESS [None]
  - DRUG INEFFECTIVE [None]
  - DRUG WITHDRAWAL SYNDROME [None]
  - EAR PAIN [None]
  - FEELING ABNORMAL [None]
  - HEADACHE [None]
  - HYPOAESTHESIA [None]
  - IMPAIRED DRIVING ABILITY [None]
  - MENIERE'S DISEASE [None]
  - NEURALGIA [None]
  - PARAESTHESIA [None]
  - TINNITUS [None]
  - VERTIGO [None]
  - WEIGHT DECREASED [None]
